FAERS Safety Report 4887809-5 (Version None)
Quarter: 2006Q1

REPORT INFORMATION
  Report Type: 
  Country: None (occurrence: None)
  Receive Date: 20060123
  Receipt Date: 20030605
  Transmission Date: 20060701
  Serious: Yes (Hospitalization)
  Sender: FDA-Public Use
  Company Number: US-MERCK-0306USA00784

PATIENT
  Age: 69 Year
  Sex: Female
  Weight: 76 kg

DRUGS (6)
  1. VIOXX [Suspect]
     Indication: ARTHRITIS
     Route: 048
     Dates: start: 20000503, end: 20010812
  2. NORVASC [Concomitant]
     Route: 065
  3. HYDROCHLOROTHIAZIDE [Concomitant]
     Route: 065
  4. DIOVAN [Concomitant]
     Route: 065
  5. PRAVACHOL [Concomitant]
     Route: 065
  6. GEMFIBROZIL [Concomitant]
     Route: 065

REACTIONS (41)
  - ADVERSE DRUG REACTION [None]
  - ARTHRALGIA [None]
  - ASTHENIA [None]
  - AZOTAEMIA [None]
  - BACK PAIN [None]
  - BREAST MASS [None]
  - DEHYDRATION [None]
  - DIABETES MELLITUS [None]
  - DIVERTICULUM [None]
  - DYSKINESIA [None]
  - DYSURIA [None]
  - ECZEMA [None]
  - FAECES DISCOLOURED [None]
  - FATIGUE [None]
  - FEELING ABNORMAL [None]
  - GALLBLADDER DISORDER [None]
  - GALLBLADDER ENLARGEMENT [None]
  - HEPATITIS [None]
  - HERPES ZOSTER [None]
  - HYPERTENSIVE EMERGENCY [None]
  - HYPERTROPHY [None]
  - INFLUENZA [None]
  - INFLUENZA LIKE ILLNESS [None]
  - INTERVERTEBRAL DISC DISPLACEMENT [None]
  - INTERVERTEBRAL DISC PROTRUSION [None]
  - MYALGIA [None]
  - OEDEMA PERIPHERAL [None]
  - POLLAKIURIA [None]
  - PYREXIA [None]
  - RADICULOPATHY [None]
  - RECTAL HAEMORRHAGE [None]
  - RHABDOMYOLYSIS [None]
  - ROTATOR CUFF SYNDROME [None]
  - SCOLIOSIS [None]
  - SEBORRHOEIC KERATOSIS [None]
  - SPINAL OSTEOARTHRITIS [None]
  - SPLENIC CYST [None]
  - SPONDYLOLISTHESIS [None]
  - TENDONITIS [None]
  - VOMITING [None]
  - WEIGHT DECREASED [None]
